FAERS Safety Report 6582568-2 (Version None)
Quarter: 2010Q1

REPORT INFORMATION
  Report Type: 
  Country: None (occurrence: None)
  Receive Date: 20100216
  Receipt Date: 20100208
  Transmission Date: 20100710
  Serious: Yes (Other)
  Sender: FDA-Public Use
  Company Number: NL-MILLENNIUM PHARMACEUTICALS, INC.-2010-01225

PATIENT

DRUGS (1)
  1. VELCADE [Suspect]
     Indication: DRUG USE FOR UNKNOWN INDICATION

REACTIONS (1)
  - ATRIAL FIBRILLATION [None]
